FAERS Safety Report 13597739 (Version 1)
Quarter: 2017Q2

REPORT INFORMATION
  Report Type: Spontaneous
  Country: US (occurrence: US)
  Receive Date: 20170531
  Receipt Date: 20170531
  Transmission Date: 20170830
  Serious: Yes (Other)
  Sender: FDA-Public Use
  Company Number: None

PATIENT
  Age: 25 Year
  Sex: Female
  Weight: 56.25 kg

DRUGS (6)
  1. VALACYCLOVIR 1GM [Suspect]
     Active Substance: VALACYCLOVIR HYDROCHLORIDE
     Indication: ORAL HERPES
     Dosage: ?          QUANTITY:20 TABLET(S);?
     Route: 048
     Dates: start: 20170301, end: 20170430
  2. BIRTH CONTROL [Concomitant]
     Active Substance: UNSPECIFIED INGREDIENT
  3. TIZANIDINE. [Concomitant]
     Active Substance: TIZANIDINE
  4. IBUPROFIN [Concomitant]
  5. MULTIVITAMIN [Concomitant]
     Active Substance: VITAMINS
  6. VALACYCLOVIR 1GM [Suspect]
     Active Substance: VALACYCLOVIR HYDROCHLORIDE
     Indication: ORAL HERPES
     Dosage: ?          QUANTITY:20 TABLET(S);?
     Route: 048
     Dates: start: 20130901, end: 20160731

REACTIONS (2)
  - Menstruation irregular [None]
  - Infertility [None]

NARRATIVE: CASE EVENT DATE: 20130901
